FAERS Safety Report 12184921 (Version 2)
Quarter: 2016Q2

REPORT INFORMATION
  Report Type: Spontaneous
  Country: JP (occurrence: JP)
  Receive Date: 20160316
  Receipt Date: 20160429
  Transmission Date: 20160815
  Serious: Yes (Hospitalization)
  Sender: FDA-Public Use
  Company Number: JP-JT-EVA201600542KERYXP-001

PATIENT
  Age: 67 Year
  Sex: Male

DRUGS (14)
  1. FULSTAN [Concomitant]
     Indication: PROPHYLAXIS
     Dosage: 0.15 MICROGRAM, QD
     Route: 048
     Dates: start: 20101005
  2. BAYASPIRIN [Concomitant]
     Active Substance: ASPIRIN
     Indication: ANGINA PECTORIS
     Dosage: 100 MG, BID
     Route: 048
     Dates: start: 20060207
  3. RIONA [Suspect]
     Active Substance: FERRIC CITRATE ANHYDROUS
     Indication: HYPERPHOSPHATAEMIA
     Dosage: 500 MG, TID
     Route: 048
     Dates: start: 20160209
  4. KAYEXALATE [Concomitant]
     Active Substance: SODIUM POLYSTYRENE SULFONATE
     Indication: HYPERKALAEMIA
     Dosage: 1 DF, TID
     Route: 048
     Dates: start: 20150801
  5. EPOETIN ALFA [Concomitant]
     Active Substance: ERYTHROPOIETIN
     Indication: NEPHROGENIC ANAEMIA
     Dosage: 9000 IU, 3 TIMES/WK
     Route: 042
     Dates: start: 20160216
  6. NIFEDIPINE. [Concomitant]
     Active Substance: NIFEDIPINE
     Indication: ANGINA PECTORIS
     Dosage: 40 MG, BID
     Route: 048
     Dates: start: 20110407
  7. EVAMYL [Concomitant]
     Active Substance: LORMETAZEPAM
     Indication: INSOMNIA
     Dosage: 1 MG, QD
     Route: 048
     Dates: start: 20070605
  8. LIPITOR [Concomitant]
     Active Substance: ATORVASTATIN CALCIUM
     Indication: DYSLIPIDAEMIA
     Dosage: 10 MG, QD
     Route: 048
     Dates: start: 20091015
  9. RASILEZ [Concomitant]
     Active Substance: ALISKIREN
     Indication: HYPERTENSION
     Dosage: 150 MG, QD
     Route: 048
     Dates: start: 20101211
  10. DOXAZOSIN [Concomitant]
     Active Substance: DOXAZOSIN\DOXAZOSIN MESYLATE
     Indication: HYPERTENSION
     Dosage: 2 MG, QD
     Route: 048
     Dates: start: 20130126
  11. AZILVA [Concomitant]
     Active Substance: AZILSARTAN KAMEDOXOMIL
     Indication: HYPERTENSION
     Dosage: 40 MG, QD
     Route: 048
     Dates: start: 20140422
  12. INNOLET 30R [Concomitant]
     Active Substance: INSULIN NOS
     Indication: DIABETES MELLITUS
     Dosage: UNK UNK, BID
     Route: 058
     Dates: start: 20060218
  13. SENNOSIDE                          /00571901/ [Concomitant]
     Active Substance: SENNOSIDES A AND B
     Indication: CONSTIPATION
     Dosage: 12 MG, QD
     Route: 048
     Dates: start: 20071203
  14. TENELIA [Concomitant]
     Active Substance: TENELIGLIPTIN
     Indication: DIABETES MELLITUS
     Dosage: 20 MG, QD
     Route: 048
     Dates: start: 20150108

REACTIONS (1)
  - Pneumonia [Recovered/Resolved]

NARRATIVE: CASE EVENT DATE: 20160227
